FAERS Safety Report 25404179 (Version 1)
Quarter: 2025Q2

REPORT INFORMATION
  Report Type: Spontaneous
  Country: US (occurrence: US)
  Receive Date: 20250606
  Receipt Date: 20250606
  Transmission Date: 20250717
  Serious: Yes (Hospitalization, Other)
  Sender: NOVO NORDISK
  Company Number: US-NOVOPROD-1447463

PATIENT
  Age: 63 Year
  Sex: Male

DRUGS (1)
  1. LEVEMIR [Suspect]
     Active Substance: INSULIN DETEMIR
     Indication: Type 2 diabetes mellitus
     Dosage: 70 IU, QD
     Route: 058
     Dates: start: 2018

REACTIONS (2)
  - Cerebrovascular accident [Recovering/Resolving]
  - Transient ischaemic attack [Recovering/Resolving]

NARRATIVE: CASE EVENT DATE: 20250101
